FAERS Safety Report 13059323 (Version 5)
Quarter: 2019Q4

REPORT INFORMATION
  Report Type: Report from Study
  Country: US (occurrence: US)
  Receive Date: 20161223
  Receipt Date: 20191105
  Transmission Date: 20200122
  Serious: Yes (Other)
  Sender: FDA-Public Use
  Company Number: PHHY2016US175813

PATIENT
  Age: 41 Year
  Sex: Female

DRUGS (1)
  1. GILENYA [Suspect]
     Active Substance: FINGOLIMOD HYDROCHLORIDE
     Indication: MULTIPLE SCLEROSIS
     Dosage: UNK, QD
     Route: 048

REACTIONS (20)
  - Diarrhoea [Recovered/Resolved]
  - Asthenia [Unknown]
  - Alanine aminotransferase increased [Unknown]
  - Aspartate aminotransferase increased [Unknown]
  - Back pain [Recovered/Resolved]
  - Sleep apnoea syndrome [Unknown]
  - Eye pruritus [Unknown]
  - Sleep disorder [Unknown]
  - Dizziness [Recovered/Resolved]
  - Temperature intolerance [Unknown]
  - Food allergy [Unknown]
  - Gait disturbance [Unknown]
  - Lymphopenia [Unknown]
  - Fatigue [Unknown]
  - Musculoskeletal stiffness [Unknown]
  - Dizziness [Unknown]
  - Hypersensitivity [Unknown]
  - Sinusitis [Unknown]
  - Dysuria [Recovered/Resolved]
  - Tremor [Unknown]

NARRATIVE: CASE EVENT DATE: 20160923
